FAERS Safety Report 5084624-7 (Version None)
Quarter: 2006Q3

REPORT INFORMATION
  Report Type: 
  Country: None (occurrence: None)
  Receive Date: 20060821
  Receipt Date: 20060814
  Transmission Date: 20061208
  Serious: Yes (Other)
  Sender: FDA-Public Use
  Company Number: US-JNJFOC-20060803643

PATIENT
  Sex: Female
  Weight: 74.84 kg

DRUGS (3)
  1. FLEXERIL [Suspect]
     Indication: NECK INJURY
     Route: 048
  2. FLEXERIL [Suspect]
     Indication: HEAD INJURY
     Route: 048
  3. OXYCODONE HCL [Concomitant]

REACTIONS (2)
  - LOSS OF CONSCIOUSNESS [None]
  - SYNCOPE [None]
